FAERS Safety Report 6770064-9 (Version None)
Quarter: 2010Q2

REPORT INFORMATION
  Report Type: 
  Country: None (occurrence: None)
  Receive Date: 20100615
  Receipt Date: 20100608
  Transmission Date: 20101027
  Serious: Yes (Hospitalization)
  Sender: FDA-Public Use
  Company Number: GXKR2010GB06332

PATIENT
  Age: 78 Year
  Sex: Male
  Weight: 75 kg

DRUGS (9)
  1. ALENDRONIC ACID (NGX) [Suspect]
     Indication: OSTEOPOROSIS PROPHYLAXIS
     Dosage: 70 MG
     Route: 048
  2. ADCAL-D3 [Concomitant]
  3. CYCLOPHOSPHAMIDE [Concomitant]
  4. LANSOPRAZOLE [Concomitant]
  5. PREDNISOLONE [Concomitant]
  6. SALBUTAMOL [Concomitant]
  7. FLUTICASONE PROPIONATE W/SALMETEROL XINAFOATE [Concomitant]
  8. TIOTROPIUM BROMIDE [Concomitant]
  9. URSODIOL [Concomitant]

REACTIONS (3)
  - ATRIAL FIBRILLATION [None]
  - CHEST PAIN [None]
  - LOWER RESPIRATORY TRACT INFECTION [None]
